FAERS Safety Report 9282756 (Version 3)
Quarter: 2013Q2

REPORT INFORMATION
  Report Type: Spontaneous
  Country: US (occurrence: None)
  Receive Date: 20101119
  Receipt Date: 20130419
  Transmission Date: 20140414
  Serious: Yes (Hospitalization)
  Sender: FDA-Public Use
  Company Number: 54973 RSAE102810TG-002

PATIENT
  Age: 21 Month
  Sex: Male

DRUGS (1)
  1. HYLAND^S TEETHING TABLETS [Suspect]
     Indication: TEETHING
     Dosage: 3 TABS FOR  1  WEEK

REACTIONS (10)
  - Vomiting [None]
  - Pyrexia [None]
  - Hypophagia [None]
  - Fatigue [None]
  - Dry mouth [None]
  - Pallor [None]
  - Decreased activity [None]
  - White blood cell count increased [None]
  - Lethargy [None]
  - Back disorder [None]
